FAERS Safety Report 7015880-3 (Version None)
Quarter: 2010Q3

REPORT INFORMATION
  Report Type: 
  Country: None (occurrence: None)
  Receive Date: 20100927
  Receipt Date: 20100120
  Transmission Date: 20110219
  Serious: No
  Sender: FDA-Public Use
  Company Number: US-ASTRAZENECA-2010SE02840

PATIENT
  Sex: Female
  Weight: 74.8 kg

DRUGS (4)
  1. ARIMIDEX [Suspect]
     Indication: BREAST CANCER
     Route: 048
     Dates: start: 20091001
  2. METFORMIN [Concomitant]
  3. CRESTOR [Concomitant]
  4. CARBETALOL [Concomitant]

REACTIONS (2)
  - ARTHRALGIA [None]
  - NAIL DISCOLOURATION [None]
